FAERS Safety Report 20895369 (Version 1)
Quarter: 2022Q2

REPORT INFORMATION
  Report Type: Spontaneous
  Country: US (occurrence: None)
  Receive Date: 20220528
  Receipt Date: 20220528
  Transmission Date: 20220721
  Serious: Yes (Other)
  Sender: FDA-Public Use
  Company Number: None

PATIENT
  Age: 78 Year
  Sex: Female
  Weight: 50.4 kg

DRUGS (1)
  1. RECLAST [Suspect]
     Active Substance: ZOLEDRONIC ACID
     Indication: Osteoporosis
     Dosage: OTHER FREQUENCY : ONCE;?
     Route: 041
     Dates: start: 20220509, end: 20220509

REACTIONS (8)
  - Myalgia [None]
  - Myalgia [None]
  - Eye inflammation [None]
  - Scleritis [None]
  - Uveitis [None]
  - Vitreous detachment [None]
  - Lung diffusion test decreased [None]
  - Pneumonitis [None]

NARRATIVE: CASE EVENT DATE: 20220509
